FAERS Safety Report 22099703 (Version 6)
Quarter: 2023Q2

REPORT INFORMATION
  Report Type: Spontaneous
  Country: US (occurrence: US)
  Receive Date: 20230315
  Receipt Date: 20230626
  Transmission Date: 20230721
  Serious: No
  Sender: FDA-Public Use
  Company Number: US-PFIZER INC-PV202300047540

PATIENT
  Age: 69 Year
  Sex: Female

DRUGS (1)
  1. IBRANCE [Suspect]
     Active Substance: PALBOCICLIB
     Dosage: 100 MG, CYCLIC (DAILY X 14 DAYS FOLLOWED BY 14 DAYS OFF)
     Route: 048

REACTIONS (5)
  - Neoplasm recurrence [Unknown]
  - Memory impairment [Unknown]
  - Gait disturbance [Unknown]
  - Off label use [Unknown]
  - Product prescribing error [Unknown]
